FAERS Safety Report 9422148 (Version 1)
Quarter: 2013Q4

REPORT INFORMATION
  Report Type: Spontaneous
  Country: US (occurrence: None)
  Receive Date: 20130725
  Receipt Date: 20130725
  Transmission Date: 20140711
  Serious: Yes (Hospitalization, Other)
  Sender: FDA-Public Use
  Company Number: None

PATIENT
  Age: 31 Year
  Sex: 0
  Weight: 63.96 kg

DRUGS (2)
  1. NICOTROL INHALER [Suspect]
     Indication: SMOKING CESSATION THERAPY
     Dosage: 10 MG CARTRIDGE (1-4/DAY)
     Dates: start: 20130211, end: 20130219
  2. PRENATAL VITAMINS [Concomitant]

REACTIONS (2)
  - Low birth weight baby [None]
  - Exposure during pregnancy [None]
